FAERS Safety Report 8583414-8 (Version None)
Quarter: 2012Q3

REPORT INFORMATION
  Report Type: 
  Country: None (occurrence: None)
  Receive Date: 20120809
  Receipt Date: 20120724
  Transmission Date: 20120928
  Serious: Yes (Hospitalization, Other)
  Sender: FDA-Public Use
  Company Number: CHPA2012US016959

PATIENT
  Age: 58 Year
  Sex: Female

DRUGS (12)
  1. CHANTIX [Concomitant]
     Indication: SMOKING CESSATION THERAPY
     Dosage: UNK, UNK
  2. NEURONTIN [Concomitant]
     Indication: SPINAL COLUMN STENOSIS
     Dosage: 600 MG, TID
  3. NICOTINE [Suspect]
     Dosage: 21 MG, QD
     Route: 062
     Dates: start: 20120602, end: 20120610
  4. DYAZIDE [Concomitant]
     Indication: FLUID RETENTION
     Dosage: UNK, UNK
     Dates: start: 20050101
  5. SPIRIVA [Concomitant]
     Dosage: 1 DF, QD
  6. NICOTINE [Concomitant]
     Indication: SMOKING CESSATION THERAPY
     Dosage: UNK, UNK
     Dates: start: 20120701, end: 20120701
  7. LYRICA [Concomitant]
     Indication: SPINAL COLUMN STENOSIS
     Dosage: UNK, UNK
  8. FLOVENT [Concomitant]
     Dosage: 2 DF, QD
  9. NORCO [Concomitant]
     Indication: BACK PAIN
     Dosage: 1 DF, BID
  10. NICOTINE [Suspect]
     Indication: SMOKING CESSATION THERAPY
     Dosage: 21 MG, QD
     Route: 062
     Dates: start: 20070101, end: 20070101
  11. NICOTINE [Suspect]
     Dosage: 21 MG, QD
     Route: 062
     Dates: start: 20120719
  12. FAMOTIDINE [Concomitant]
     Indication: GASTROOESOPHAGEAL REFLUX DISEASE
     Dosage: UNK, UNK

REACTIONS (20)
  - ORAL CANDIDIASIS [None]
  - APPLICATION SITE ERYTHEMA [None]
  - BLADDER CANCER [None]
  - DIVERTICULITIS [None]
  - INAPPROPRIATE SCHEDULE OF DRUG ADMINISTRATION [None]
  - RENAL CANCER [None]
  - HERPES ZOSTER [None]
  - EXPIRED DRUG ADMINISTERED [None]
  - DYSPNOEA [None]
  - ABSCESS INTESTINAL [None]
  - BLOOD GLUCOSE INCREASED [None]
  - APPLICATION SITE PRURITUS [None]
  - PLATELET COUNT DECREASED [None]
  - APPLICATION SITE DISCOMFORT [None]
  - PNEUMONIA [None]
  - RESPIRATORY TRACT INFECTION [None]
  - BRONCHITIS [None]
  - HYPOXIA [None]
  - LARGE INTESTINE PERFORATION [None]
  - CHRONIC OBSTRUCTIVE PULMONARY DISEASE [None]
